FAERS Safety Report 17452627 (Version 1)
Quarter: 2020Q1

REPORT INFORMATION
  Report Type: Spontaneous
  Country: US (occurrence: US)
  Receive Date: 20200224
  Receipt Date: 20200224
  Transmission Date: 20200409
  Serious: No
  Sender: FDA-Public Use
  Company Number: US-TEVA-2020-US-1190350

PATIENT
  Age: 58 Year
  Sex: Female

DRUGS (4)
  1. DEXTROAMPHETAMINE SULFATE. [Suspect]
     Active Substance: DEXTROAMPHETAMINE SULFATE
     Indication: ATTENTION DEFICIT/HYPERACTIVITY DISORDER
     Dosage: 5 MILLIGRAM DAILY;
     Route: 065
  2. DEXAMFETAMINE SACCHARATE [Suspect]
     Active Substance: DEXTROAMPHETAMINE SACCHARATE
     Indication: ATTENTION DEFICIT/HYPERACTIVITY DISORDER
     Route: 065
  3. DEXTROAMPHETAMINE SULFATE. [Suspect]
     Active Substance: DEXTROAMPHETAMINE SULFATE
     Dosage: 10 MILLIGRAM DAILY;
     Route: 065
  4. DEXTROAMPHETAMINE SULFATE. [Suspect]
     Active Substance: DEXTROAMPHETAMINE SULFATE
     Route: 065

REACTIONS (5)
  - Musculoskeletal stiffness [Unknown]
  - Muscle tightness [Unknown]
  - Urticaria [Unknown]
  - Weight decreased [Unknown]
  - Decreased appetite [Unknown]
